FAERS Safety Report 18585582 (Version 9)
Quarter: 2025Q2

REPORT INFORMATION
  Report Type: Spontaneous
  Country: SK (occurrence: SK)
  Receive Date: 20201207
  Receipt Date: 20250603
  Transmission Date: 20250716
  Serious: Yes (Death, Life-Threatening, Hospitalization, Other)
  Sender: MYLAN
  Company Number: SK-KRKA-SK2020K17231LIT

PATIENT
  Age: 61 Year
  Sex: Female

DRUGS (22)
  1. ARIPIPRAZOLE [Suspect]
     Active Substance: ARIPIPRAZOLE
     Indication: Schizoaffective disorder depressive type
  2. QUETIAPINE [Suspect]
     Active Substance: QUETIAPINE
     Indication: Schizoaffective disorder depressive type
  3. TIAPRIDE HYDROCHLORIDE [Suspect]
     Active Substance: TIAPRIDE HYDROCHLORIDE
     Indication: Schizoaffective disorder depressive type
  4. TIAPRIDE HYDROCHLORIDE [Suspect]
     Active Substance: TIAPRIDE HYDROCHLORIDE
     Indication: Schizoaffective disorder
  5. TIAPRIDE HYDROCHLORIDE [Suspect]
     Active Substance: TIAPRIDE HYDROCHLORIDE
     Indication: Psychotic disorder
  6. ESCITALOPRAM [Suspect]
     Active Substance: ESCITALOPRAM OXALATE
     Indication: Schizoaffective disorder depressive type
  7. ESCITALOPRAM [Suspect]
     Active Substance: ESCITALOPRAM OXALATE
     Indication: Schizoaffective disorder
  8. ESCITALOPRAM [Suspect]
     Active Substance: ESCITALOPRAM OXALATE
     Indication: Antidepressant therapy
  9. DIAZEPAM [Suspect]
     Active Substance: DIAZEPAM
     Indication: Schizoaffective disorder depressive type
  10. DIAZEPAM [Suspect]
     Active Substance: DIAZEPAM
     Indication: Schizoaffective disorder
  11. DIAZEPAM [Suspect]
     Active Substance: DIAZEPAM
     Indication: Anxiolytic therapy
  12. METOCLOPRAMIDE [Concomitant]
     Active Substance: METOCLOPRAMIDE
     Indication: Laxative supportive care
  13. LACTULOSE [Concomitant]
     Active Substance: LACTULOSE
     Indication: Laxative supportive care
  14. MEROPENEM [Concomitant]
     Active Substance: MEROPENEM
     Indication: Urinary tract infection
  15. MEROPENEM [Concomitant]
     Active Substance: MEROPENEM
     Indication: Pneumonia klebsiella
  16. FOSFOMYCIN [Concomitant]
     Active Substance: FOSFOMYCIN
     Indication: Urinary tract infection
  17. FOSFOMYCIN [Concomitant]
     Active Substance: FOSFOMYCIN
     Indication: Pneumonia klebsiella
  18. SODIUM PICOSULFATE [Concomitant]
     Active Substance: SODIUM PICOSULFATE
  19. ITOPRIDE [Concomitant]
     Active Substance: ITOPRIDE
  20. CEFOTAXIME [Concomitant]
     Active Substance: CEFOTAXIME SODIUM
     Indication: Respiratory disorder prophylaxis
  21. METRONIDAZOLE [Concomitant]
     Active Substance: METRONIDAZOLE
     Indication: Respiratory disorder prophylaxis
  22. UNSPECIFIED INGREDIENT [Concomitant]
     Active Substance: UNSPECIFIED INGREDIENT
     Indication: Thrombosis prophylaxis

REACTIONS (21)
  - Large intestine perforation [Fatal]
  - Peritonitis [Fatal]
  - Constipation [Fatal]
  - Intestinal perforation [Fatal]
  - Faecaloma [Fatal]
  - Abnormal faeces [Fatal]
  - Tissue infiltration [Fatal]
  - Abdominal distension [Fatal]
  - Intestinal dilatation [Fatal]
  - Mucosal ulceration [Fatal]
  - Rectal ulcer [Fatal]
  - Rectal haemorrhage [Fatal]
  - Schizoaffective disorder [Fatal]
  - Urinary tract infection [Recovered/Resolved]
  - Lethargy [Unknown]
  - Hypotension [Unknown]
  - C-reactive protein increased [Unknown]
  - Psychomotor retardation [Unknown]
  - Altered state of consciousness [Unknown]
  - Product use in unapproved indication [Unknown]
  - Off label use [Unknown]
